FAERS Safety Report 5449525-0 (Version None)
Quarter: 2007Q3

REPORT INFORMATION
  Report Type: 
  Country: None (occurrence: None)
  Receive Date: 20070907
  Receipt Date: 20070822
  Transmission Date: 20080115
  Serious: Yes (Hospitalization)
  Sender: FDA-Public Use
  Company Number: 8019171

PATIENT
  Age: 67 Year
  Sex: Female

DRUGS (11)
  1. LORTAB [Suspect]
  2. KLONOPIN [Suspect]
  3. PARACETAMOL [Concomitant]
  4. PROZAC [Concomitant]
  5. SYNTHROID [Concomitant]
  6. ATENOLOL [Concomitant]
  7. SINGULAIR [Concomitant]
  8. RHINOCORT [Concomitant]
  9. NEXIUM [Concomitant]
  10. LASIX [Concomitant]
  11. BENICAR [Concomitant]

REACTIONS (8)
  - CONDITION AGGRAVATED [None]
  - DIARRHOEA [None]
  - DIVERTICULITIS [None]
  - FALL [None]
  - INTERVERTEBRAL DISC DISORDER [None]
  - NAUSEA [None]
  - SPINAL COMPRESSION FRACTURE [None]
  - VOMITING [None]
